FAERS Safety Report 8208180-7 (Version None)
Quarter: 2012Q1

REPORT INFORMATION
  Report Type: 
  Country: None (occurrence: None)
  Receive Date: 20120314
  Receipt Date: 20120308
  Transmission Date: 20120608
  Serious: Yes (Other)
  Sender: FDA-Public Use
  Company Number: PHEH2012US005089

PATIENT
  Sex: Female

DRUGS (3)
  1. VENLAFAXINE [Concomitant]
     Indication: DEPRESSION
     Dosage: 225 MG, QD
     Dates: start: 20020101
  2. GILENYA [Suspect]
     Indication: MULTIPLE SCLEROSIS
     Dosage: 0.5 MG, UNK
     Route: 048
     Dates: start: 20110427
  3. SINEMET [Concomitant]
     Indication: RESTLESS LEGS SYNDROME
     Dosage: 1 DF, 25/100

REACTIONS (3)
  - SQUAMOUS CELL CARCINOMA [None]
  - TENDERNESS [None]
  - MASS [None]
